FAERS Safety Report 13867551 (Version 2)
Quarter: 2017Q3

REPORT INFORMATION
  Report Type: Spontaneous
  Country: IT (occurrence: IT)
  Receive Date: 20170814
  Receipt Date: 20170829
  Transmission Date: 20171127
  Serious: Yes (Hospitalization)
  Sender: FDA-Public Use
  Company Number: IT-ABBVIE-17K-083-2066867-00

PATIENT
  Age: 64 Year
  Sex: Male

DRUGS (5)
  1. ADALIMUMAB [Suspect]
     Active Substance: ADALIMUMAB
     Indication: PSORIATIC ARTHROPATHY
     Route: 058
     Dates: start: 2013
  2. ENBREL [Suspect]
     Active Substance: ETANERCEPT
     Indication: PSORIATIC ARTHROPATHY
     Route: 065
     Dates: start: 2012
  3. ADALIMUMAB [Suspect]
     Active Substance: ADALIMUMAB
     Indication: RENAL FAILURE
  4. ENBREL [Suspect]
     Active Substance: ETANERCEPT
     Indication: RENAL FAILURE
     Dosage: 1 VIAL EVERY 2 WEEKS FOR 4 MONTHS
     Route: 065
     Dates: start: 2013
  5. CORTISONE [Concomitant]
     Active Substance: CORTISONE\HYDROCORTISONE
     Indication: PRODUCT USED FOR UNKNOWN INDICATION

REACTIONS (4)
  - Antineutrophil cytoplasmic antibody positive [Not Recovered/Not Resolved]
  - Nephrotic syndrome [Not Recovered/Not Resolved]
  - Glomerulonephritis [Not Recovered/Not Resolved]
  - IgA nephropathy [Not Recovered/Not Resolved]
